FAERS Safety Report 5837834-2 (Version None)
Quarter: 2008Q3

REPORT INFORMATION
  Report Type: 
  Country: None (occurrence: None)
  Receive Date: 20080808
  Receipt Date: 20080528
  Transmission Date: 20090109
  Serious: No
  Sender: FDA-Public Use
  Company Number: A0729943A

PATIENT
  Age: 44 Year
  Sex: Female

DRUGS (2)
  1. PAXIL [Suspect]
     Dosage: 10MG PER DAY
     Route: 048
     Dates: start: 20080514, end: 20080522
  2. XANAX [Concomitant]

REACTIONS (4)
  - FLATULENCE [None]
  - MALAISE [None]
  - NAUSEA [None]
  - VOMITING [None]
